FAERS Safety Report 8683270 (Version 4)
Quarter: 2012Q4

REPORT INFORMATION
  Report Type: 
  Country: DE (occurrence: JP)
  Receive Date: 20120726
  Receipt Date: 20121008
  Transmission Date: 20130627
  Serious: Yes (Life-Threatening, Hospitalization)
  Sender: FDA-Public Use
  Company Number: JP-BRISTOL-MYERS SQUIBB COMPANY-16789034

PATIENT
  Age: 61 Year
  Sex: Male
  Weight: 79 kg

DRUGS (8)
  1. ERBITUX SOLN FOR INF 5MG/ML [Suspect]
     Indication: RECTAL CANCER
     Dosage: No of inf:2
Last dose on 28Jun2012
     Route: 041
     Dates: start: 20120622, end: 20120628
  2. CAMPTO [Suspect]
     Indication: RECTAL CANCER
     Dosage: No of inf:2
Last dose on 28Jun2012
     Route: 041
     Dates: start: 20120622, end: 20120628
  3. POLARAMINE [Concomitant]
     Dosage: inj
     Route: 042
     Dates: start: 20120622, end: 20120628
  4. DEXART [Concomitant]
     Dosage: inj
     Route: 042
     Dates: start: 20120622, end: 20120628
  5. HEPARIN SODIUM [Concomitant]
     Dosage: inj
     Route: 042
     Dates: start: 20120622, end: 20120628
  6. GLUCOSE [Concomitant]
     Route: 042
     Dates: start: 20120622, end: 20120628
  7. PARIET [Concomitant]
     Indication: GASTROOESOPHAGEAL REFLUX DISEASE
     Dosage: tabs
     Route: 048
     Dates: start: 20120224
  8. SODIUM CHLORIDE [Concomitant]
     Dosage: inj
     Route: 040
     Dates: start: 20120622, end: 20120628

REACTIONS (1)
  - Erosive duodenitis [Recovering/Resolving]
